FAERS Safety Report 17183347 (Version 1)
Quarter: 2019Q4

REPORT INFORMATION
  Report Type: Spontaneous
  Country: GB (occurrence: GB)
  Receive Date: 20191220
  Receipt Date: 20191220
  Transmission Date: 20200122
  Serious: Yes (Other)
  Sender: FDA-Public Use
  Company Number: GB-ACCORD-165671

PATIENT
  Age: 54 Year
  Sex: Male

DRUGS (7)
  1. TOLTERODINE/TOLTERODINE L-TARTRATE [Concomitant]
     Active Substance: TOLTERODINE TARTRATE
  2. MIRTAZAPINE. [Concomitant]
     Active Substance: MIRTAZAPINE
  3. BECLOMETASONE [Concomitant]
     Active Substance: BECLOMETHASONE DIPROPIONATE
  4. LORATADINE. [Concomitant]
     Active Substance: LORATADINE
  5. SALBUTAMOL/SALBUTAMOL SULFATE [Concomitant]
     Active Substance: ALBUTEROL
  6. PROPRANOLOL [Concomitant]
     Active Substance: PROPRANOLOL HYDROCHLORIDE
  7. ARIPIPRAZOLE. [Suspect]
     Active Substance: ARIPIPRAZOLE
     Indication: PSYCHOTIC SYMPTOM
     Route: 048
     Dates: start: 20191108, end: 20191111

REACTIONS (5)
  - Balance disorder [Recovering/Resolving]
  - Dysarthria [Not Recovered/Not Resolved]
  - Salivary hypersecretion [Not Recovered/Not Resolved]
  - Lethargy [Recovering/Resolving]
  - Decreased appetite [Recovering/Resolving]

NARRATIVE: CASE EVENT DATE: 20191109
